FAERS Safety Report 25287136 (Version 1)
Quarter: 2025Q2

REPORT INFORMATION
  Report Type: Spontaneous
  Country: US (occurrence: None)
  Receive Date: 20250508
  Receipt Date: 20250508
  Transmission Date: 20250716
  Serious: Yes (Death)
  Sender: FDA-CTU
  Company Number: None

PATIENT
  Age: 77 Year
  Sex: Male

DRUGS (1)
  1. PIRFENIDONE [Suspect]
     Active Substance: PIRFENIDONE
     Indication: Interstitial lung disease
     Dosage: FREQUENCY : 3 TIMES A DAY;?
     Route: 048
     Dates: start: 20240620, end: 20241210

REACTIONS (6)
  - Weight decreased [None]
  - Muscle atrophy [None]
  - Asthenia [None]
  - Therapy interrupted [None]
  - Interstitial lung disease [None]
  - Disease progression [None]

NARRATIVE: CASE EVENT DATE: 20250110
